FAERS Safety Report 6832764-1 (Version None)
Quarter: 2010Q3

REPORT INFORMATION
  Report Type: 
  Country: None (occurrence: None)
  Receive Date: 20100712
  Receipt Date: 20070320
  Transmission Date: 20110219
  Serious: No
  Sender: FDA-Public Use
  Company Number: US-PFIZER INC-2007023937

PATIENT
  Sex: Male

DRUGS (3)
  1. CHANTIX [Suspect]
  2. ALL OTHER THERAPEUTIC PRODUCTS [Concomitant]
     Indication: ATTENTION DEFICIT/HYPERACTIVITY DISORDER
  3. ALL OTHER THERAPEUTIC PRODUCTS [Concomitant]
     Indication: ANXIETY

REACTIONS (1)
  - FEELING ABNORMAL [None]
